FAERS Safety Report 18584686 (Version 1)
Quarter: 2020Q4

REPORT INFORMATION
  Report Type: Spontaneous
  Country: IT (occurrence: IT)
  Receive Date: 20201207
  Receipt Date: 20201207
  Transmission Date: 20210114
  Serious: Yes (Death, Other)
  Sender: FDA-Public Use
  Company Number: IT-TEVA-2020-IT-1856088

PATIENT
  Age: 5 Decade
  Sex: Female

DRUGS (6)
  1. PERTUZUMAB. [Concomitant]
     Active Substance: PERTUZUMAB
     Indication: BREAST CANCER METASTATIC
     Route: 065
     Dates: start: 20170319
  2. PACLITAXEL. [Suspect]
     Active Substance: PACLITAXEL
     Indication: BREAST CANCER METASTATIC
     Dosage: ADMINISTERED AT 50% REDUCED DOSE
     Route: 065
     Dates: start: 20170319
  3. TRASTUZUMAB. [Concomitant]
     Active Substance: TRASTUZUMAB
     Indication: BREAST CANCER FEMALE
  4. TRASTUZUMAB. [Concomitant]
     Active Substance: TRASTUZUMAB
     Indication: BREAST CANCER METASTATIC
     Route: 065
     Dates: start: 20170319
  5. PACLITAXEL. [Suspect]
     Active Substance: PACLITAXEL
     Dosage: DOSE: 80 MG/M2 (FULL DOSE; STATED ON DAY 8 OF CYCLE 3)
     Route: 065
  6. PERTUZUMAB. [Concomitant]
     Active Substance: PERTUZUMAB
     Indication: BREAST CANCER FEMALE

REACTIONS (3)
  - Neurotoxicity [Recovering/Resolving]
  - Condition aggravated [Recovered/Resolved]
  - Hepatic function abnormal [Recovered/Resolved]
